FAERS Safety Report 11866008 (Version 2)
Quarter: 2015Q4

REPORT INFORMATION
  Report Type: Spontaneous
  Country: IT (occurrence: IT)
  Receive Date: 20151223
  Receipt Date: 20151228
  Transmission Date: 20160305
  Serious: Yes (Other)
  Sender: FDA-Public Use
  Company Number: PHHY2015IT164153

PATIENT
  Age: 45 Year
  Sex: Male
  Weight: 72 kg

DRUGS (4)
  1. OXALIPLATIN. [Suspect]
     Active Substance: OXALIPLATIN
     Indication: SMALL INTESTINE CARCINOMA
     Dosage: 120 MG, CYCLIC
     Route: 042
     Dates: start: 20150209, end: 20150409
  2. 5-FLUOROURACIL [Suspect]
     Active Substance: FLUOROURACIL
     Dosage: 4440 MG, CYCLIC
     Route: 042
     Dates: start: 20150209
  3. LEDERFOLIN [Suspect]
     Active Substance: LEUCOVORIN CALCIUM
     Indication: SMALL INTESTINE CARCINOMA
     Dosage: 370 MG, CYCLIC
     Route: 042
     Dates: start: 20150209
  4. 5-FLUOROURACIL [Suspect]
     Active Substance: FLUOROURACIL
     Indication: SMALL INTESTINE CARCINOMA
     Dosage: 740 MG, CYCLIC
     Route: 040
     Dates: start: 20150209

REACTIONS (4)
  - Erythema [Recovering/Resolving]
  - Infusion site reaction [Recovering/Resolving]
  - Pruritus [Recovering/Resolving]
  - Weight decreased [Recovering/Resolving]

NARRATIVE: CASE EVENT DATE: 20150309
